FAERS Safety Report 8759763 (Version 1)
Quarter: 2012Q4

REPORT INFORMATION
  Report Type: 
  Country: CN (occurrence: CN)
  Receive Date: 20120829
  Receipt Date: 20120829
  Transmission Date: 20130627
  Serious: Yes (Other)
  Sender: FDA-Public Use
  Company Number: CN-ROCHE-CID000000002125583

PATIENT
  Sex: Male
  Weight: 83.5 kg

DRUGS (2)
  1. ROCEPHIN [Suspect]
     Indication: INFECTION
     Route: 041
     Dates: start: 20100908, end: 20100910
  2. ROCEPHIN [Suspect]
     Route: 041
     Dates: start: 20100911, end: 20101013

REACTIONS (1)
  - Fungal infection [Recovering/Resolving]
